FAERS Safety Report 5706936-3 (Version None)
Quarter: 2008Q2

REPORT INFORMATION
  Report Type: 
  Country: None (occurrence: None)
  Receive Date: 20080415
  Receipt Date: 20080415
  Transmission Date: 20081010
  Serious: Yes (Other)
  Sender: FDA-Public Use
  Company Number: None

PATIENT
  Age: 59 Year
  Sex: Female
  Weight: 65.7716 kg

DRUGS (1)
  1. GADOLINIUM [Suspect]

REACTIONS (8)
  - ASTHENIA [None]
  - ASTHMA [None]
  - BACK PAIN [None]
  - DYSPNOEA [None]
  - HYPERSENSITIVITY [None]
  - OCULAR HYPERAEMIA [None]
  - ORBITAL OEDEMA [None]
  - SWOLLEN TONGUE [None]
